FAERS Safety Report 15864059 (Version 1)
Quarter: 2019Q1

REPORT INFORMATION
  Report Type: Spontaneous
  Country: US (occurrence: US)
  Receive Date: 20190124
  Receipt Date: 20190124
  Transmission Date: 20190417
  Serious: Yes (Other)
  Sender: FDA-Public Use
  Company Number: US-BECTON DICKINSON-2019BDN00020

PATIENT

DRUGS (2)
  1. POWERPICC 6.0 FR TRIPLE LUMEN CATHETER [Suspect]
     Active Substance: DEVICE
  2. CHLORAPREP [Suspect]
     Active Substance: CHLORHEXIDINE GLUCONATE\ISOPROPYL ALCOHOL
     Indication: INFECTION PROPHYLAXIS
     Route: 061

REACTIONS (3)
  - Foreign body [Unknown]
  - Complication of device insertion [Unknown]
  - Device breakage [None]
